FAERS Safety Report 9422631 (Version 2)
Quarter: 2013Q3

REPORT INFORMATION
  Report Type: Spontaneous
  Country: US (occurrence: US)
  Receive Date: 20130726
  Receipt Date: 20130820
  Transmission Date: 20140515
  Serious: No
  Sender: FDA-Public Use
  Company Number: US-009507513-1307USA003554

PATIENT
  Sex: Female

DRUGS (3)
  1. COPPERTONE WATER BABIES PURE + SIMPLE LOTION SPF 50 [Suspect]
     Indication: PRODUCT USED FOR UNKNOWN INDICATION
     Dosage: UNK, UNKNOWN
     Route: 061
  2. COPPERTONE WATER BABIES PURE + SIMPLE LOTION SPF 50 [Suspect]
     Dosage: UNK, UNKNOWN
     Route: 061
  3. COPPERTONE WATER BABIES PURE + SIMPLE LOTION SPF 50 [Suspect]
     Dosage: UNK, UNKNOWN
     Route: 061

REACTIONS (2)
  - Rash macular [Unknown]
  - Urticaria [Recovered/Resolved]
